FAERS Safety Report 19836933 (Version 2)
Quarter: 2021Q3

REPORT INFORMATION
  Report Type: Spontaneous
  Country: UA (occurrence: UA)
  Receive Date: 20210914
  Receipt Date: 20210922
  Transmission Date: 20211014
  Serious: Yes (Hospitalization)
  Sender: FDA-Public Use
  Company Number: NVSC2021UA207527

PATIENT
  Age: 89 Year
  Sex: Male

DRUGS (3)
  1. WARFARIN [Suspect]
     Active Substance: WARFARIN
     Indication: COVID-19
     Dosage: UNDER THE CONTROL OF INR ? 2
     Route: 065
  2. AZITHROMYCIN ANHYDROUS. [Suspect]
     Active Substance: AZITHROMYCIN ANHYDROUS
     Indication: COVID-19
     Dosage: UNK
     Route: 065
  3. WARFARIN [Suspect]
     Active Substance: WARFARIN
     Dosage: INR}10
     Route: 065

REACTIONS (2)
  - Hypersensitivity [Recovering/Resolving]
  - Overdose [Recovering/Resolving]
